FAERS Safety Report 8630986 (Version 2)
Quarter: 2012Q4

REPORT INFORMATION
  Report Type: 
  Country: GB (occurrence: GB)
  Receive Date: 20120622
  Receipt Date: 20120829
  Transmission Date: 20130627
  Serious: Yes (Hospitalization, Other)
  Sender: FDA-Public Use
  Company Number: PHHY2012GB052779

PATIENT
  Age: 57 Year
  Sex: Female

DRUGS (3)
  1. WARFARIN [Suspect]
     Dosage: 3 mg
     Route: 048
     Dates: start: 1998
  2. ARCOXIA [Interacting]
     Indication: ARTHRALGIA
     Dosage: 60 mg, UNK
     Route: 048
     Dates: start: 20120524, end: 20120531
  3. SULFASALAZINE [Concomitant]
     Indication: RHEUMATOID ARTHRITIS
     Dosage: 500 mg, BID
     Route: 048

REACTIONS (2)
  - International normalised ratio increased [Recovered/Resolved]
  - Drug interaction [Recovered/Resolved]
